FAERS Safety Report 23655117 (Version 1)
Quarter: 2024Q1

REPORT INFORMATION
  Report Type: Spontaneous
  Country: IT (occurrence: IT)
  Receive Date: 20240320
  Receipt Date: 20240320
  Transmission Date: 20240410
  Serious: Yes (Other)
  Sender: FDA-Public Use
  Company Number: None

PATIENT
  Age: 44 Year
  Sex: Female

DRUGS (4)
  1. KEPPRA [Suspect]
     Active Substance: LEVETIRACETAM
     Indication: Epilepsy
     Dosage: 1 G
     Route: 048
     Dates: start: 20220115, end: 20220115
  2. LORAZEPAM [Suspect]
     Active Substance: LORAZEPAM
     Indication: Anxiety
     Dosage: 2 DOSAGE FORM
     Route: 048
     Dates: start: 20220115, end: 20220115
  3. PREGABALIN [Suspect]
     Active Substance: PREGABALIN
     Indication: Generalised anxiety disorder
     Dosage: 75 MG, QD
     Route: 048
     Dates: start: 20220115, end: 20220115
  4. QUETIAPINE [Suspect]
     Active Substance: QUETIAPINE
     Indication: Depression
     Dosage: 50 MG, TABLET
     Route: 048
     Dates: start: 20220115, end: 20220115

REACTIONS (2)
  - Suicide attempt [Recovering/Resolving]
  - Psychomotor retardation [Recovering/Resolving]

NARRATIVE: CASE EVENT DATE: 20220115
